FAERS Safety Report 13163476 (Version 1)
Quarter: 2017Q1

REPORT INFORMATION
  Report Type: Spontaneous
  Country: US (occurrence: US)
  Receive Date: 20170130
  Receipt Date: 20170130
  Transmission Date: 20170428
  Serious: No
  Sender: FDA-Public Use
  Company Number: US-JNJFOC-20170122733

PATIENT
  Age: 41 Year
  Sex: Female

DRUGS (1)
  1. STELARA [Suspect]
     Active Substance: USTEKINUMAB
     Indication: CROHN^S DISEASE
     Dosage: REPORTED AS 3 VIALS
     Route: 042

REACTIONS (7)
  - Myalgia [Unknown]
  - Paraesthesia [Unknown]
  - Urticaria [Recovered/Resolved]
  - Migraine [Recovered/Resolved]
  - Swelling [Unknown]
  - Arthralgia [Unknown]
  - Constipation [Unknown]

NARRATIVE: CASE EVENT DATE: 20170113
